FAERS Safety Report 6213364-3 (Version None)
Quarter: 2009Q2

REPORT INFORMATION
  Report Type: 
  Country: None (occurrence: None)
  Receive Date: 20090601
  Receipt Date: 20090515
  Transmission Date: 20091009
  Serious: Yes (Hospitalization)
  Sender: FDA-Public Use
  Company Number: DAV-AE-NAP-09-002

PATIENT
  Age: 37 Year
  Sex: Male

DRUGS (5)
  1. NAPROXEN [Suspect]
  2. LORAZEPAM [Concomitant]
  3. OXAZEPAM [Concomitant]
  4. BCLOFEN [Concomitant]
  5. ETHANOL [Concomitant]

REACTIONS (6)
  - ALCOHOL USE [None]
  - ASPARTATE AMINOTRANSFERASE INCREASED [None]
  - BLOOD BILIRUBIN INCREASED [None]
  - GAMMA-GLUTAMYLTRANSFERASE INCREASED [None]
  - INTENTIONAL DRUG MISUSE [None]
  - SUICIDE ATTEMPT [None]
